FAERS Safety Report 20333514 (Version 1)
Quarter: 2022Q1

REPORT INFORMATION
  Report Type: Spontaneous
  Country: IT (occurrence: IT)
  Receive Date: 20220113
  Receipt Date: 20220113
  Transmission Date: 20220424
  Serious: Yes (Other)
  Sender: FDA-Public Use
  Company Number: IT-ABBVIE-22K-083-4225737-00

PATIENT

DRUGS (3)
  1. VALPROIC ACID [Suspect]
     Active Substance: VALPROIC ACID
     Indication: Product used for unknown indication
     Route: 065
  2. INTERFERON ALFA-2A [Concomitant]
     Active Substance: INTERFERON ALFA-2A
     Indication: Product used for unknown indication
  3. DACARBAZINE [Concomitant]
     Active Substance: DACARBAZINE
     Indication: Product used for unknown indication

REACTIONS (6)
  - Cerebral haemorrhage [Unknown]
  - Coma [Recovered/Resolved]
  - White blood cell count increased [Unknown]
  - Hypocalcaemia [Unknown]
  - Headache [Unknown]
  - Neurological symptom [Recovered/Resolved]
